FAERS Safety Report 5205814-6 (Version None)
Quarter: 2007Q1

REPORT INFORMATION
  Report Type: 
  Country: None (occurrence: None)
  Receive Date: 20070108
  Receipt Date: 20070108
  Transmission Date: 20070707
  Serious: Yes (Life-Threatening)
  Sender: FDA-Public Use
  Company Number: None

PATIENT
  Age: 52 Year
  Sex: Female
  Weight: 74.8435 kg

DRUGS (2)
  1. DICLOFENAC SODIUM [Suspect]
     Indication: ARTHRITIS
     Dosage: 75 MG 2 X DAILY PO
     Route: 048
     Dates: start: 20061227, end: 20061227
  2. DICLOFENAC SODIUM [Suspect]
     Indication: INFLAMMATION
     Dosage: 75 MG 2 X DAILY PO
     Route: 048
     Dates: start: 20061227, end: 20061227

REACTIONS (3)
  - BLOOD PRESSURE INCREASED [None]
  - INSOMNIA [None]
  - PALPITATIONS [None]
